FAERS Safety Report 16463027 (Version 1)
Quarter: 2019Q2

REPORT INFORMATION
  Report Type: Spontaneous
  Country: US (occurrence: US)
  Receive Date: 20190621
  Receipt Date: 20190621
  Transmission Date: 20190711
  Serious: No
  Sender: FDA-Public Use
  Company Number: US-GLAXOSMITHKLINE-US2019108684

PATIENT
  Age: 78 Year
  Sex: Female

DRUGS (2)
  1. FLONASE [Suspect]
     Active Substance: FLUTICASONE PROPIONATE
     Indication: EAR INFECTION
     Dosage: UNK,(JUNE 2ND AND I DID TWO SPRAYS ON EACH SIDE FOR A WEEK,PAST SUNDAY I DID ONE SPRAY )
     Route: 045
     Dates: start: 20190602, end: 20190612
  2. FLONASE [Suspect]
     Active Substance: FLUTICASONE PROPIONATE
     Indication: SINUSITIS

REACTIONS (8)
  - Nervousness [Recovered/Resolved]
  - Product use in unapproved indication [Unknown]
  - Middle ear effusion [Not Recovered/Not Resolved]
  - Contraindicated product administered [Unknown]
  - Inappropriate schedule of product administration [Unknown]
  - Nightmare [Recovered/Resolved]
  - Off label use [Unknown]
  - Dysgeusia [Recovered/Resolved]

NARRATIVE: CASE EVENT DATE: 20190602
